FAERS Safety Report 17467586 (Version 1)
Quarter: 2020Q1

REPORT INFORMATION
  Report Type: Spontaneous
  Country: US (occurrence: US)
  Receive Date: 20200226
  Receipt Date: 20200226
  Transmission Date: 20200409
  Serious: No
  Sender: FDA-Public Use
  Company Number: None

PATIENT
  Age: 54 Year
  Sex: Male
  Weight: 80.1 kg

DRUGS (8)
  1. VITAMIN B-1 [Concomitant]
     Active Substance: THIAMINE HYDROCHLORIDE
  2. FOLIC ACID. [Concomitant]
     Active Substance: FOLIC ACID
  3. ACYCLOVIR. [Concomitant]
     Active Substance: ACYCLOVIR
  4. PROMACTA [Suspect]
     Active Substance: ELTROMBOPAG OLAMINE
     Indication: WALDENSTROM^S MACROGLOBULINAEMIA
     Route: 048
     Dates: start: 20200116
  5. RITUXAN [Concomitant]
     Active Substance: RITUXIMAB
  6. MULTIVITAMIN ADULTS [Concomitant]
  7. BORTEZOMIB. [Concomitant]
     Active Substance: BORTEZOMIB
  8. ONDANSETRON [Concomitant]
     Active Substance: ONDANSETRON

REACTIONS (2)
  - Therapy cessation [None]
  - Liver function test increased [None]

NARRATIVE: CASE EVENT DATE: 20200224
